FAERS Safety Report 9536767 (Version 1)
Quarter: 2013Q3

REPORT INFORMATION
  Report Type: Spontaneous
  Country: JP (occurrence: JP)
  Receive Date: 20130919
  Receipt Date: 20130919
  Transmission Date: 20140515
  Serious: Yes (Other)
  Sender: FDA-Public Use
  Company Number: JP-PFIZER INC-2013268720

PATIENT
  Sex: Male

DRUGS (1)
  1. LYRICA [Suspect]
     Indication: PROCEDURAL PAIN
     Dosage: 150 MG, 2X/DAY (MORNING AND NIGHT)
     Route: 048

REACTIONS (6)
  - Off label use [Unknown]
  - Angina pectoris [Unknown]
  - Tremor [Unknown]
  - Bladder disorder [Unknown]
  - Fall [Unknown]
  - Autonomic nervous system imbalance [Unknown]
